FAERS Safety Report 11050152 (Version 5)
Quarter: 2015Q3

REPORT INFORMATION
  Report Type: Report from Study
  Country: JP (occurrence: JP)
  Receive Date: 20150420
  Receipt Date: 20150715
  Transmission Date: 20151125
  Serious: Yes (Hospitalization)
  Sender: FDA-Public Use
  Company Number: JP-MERCK-1503JPN010068

PATIENT
  Age: 54 Year
  Sex: Female

DRUGS (10)
  1. PEMBROLIZUMAB. [Suspect]
     Active Substance: PEMBROLIZUMAB
     Dosage: 10 MG/KG, Q3W
     Route: 042
     Dates: start: 20150226, end: 20150226
  2. CALCIUM CARBIMIDE [Suspect]
     Active Substance: CALCIUM CARBIMIDE
     Indication: ALCOHOLISM
     Dosage: 14 ML, QD
     Route: 048
     Dates: start: 201412, end: 20150323
  3. WARFARIN POTASSIUM [Concomitant]
     Active Substance: WARFARIN POTASSIUM
     Indication: CEREBRAL INFARCTION
     Dosage: 3.5 MG, QD
     Route: 048
     Dates: start: 20141118
  4. LOPERAMIDE HYDROCHLORIDE. [Concomitant]
     Active Substance: LOPERAMIDE HYDROCHLORIDE
     Indication: DIARRHOEA
     Dosage: TOTAL DAILY DOSE: 1 MG, PRN
     Route: 048
     Dates: start: 20150210, end: 20150226
  5. ACAMPROSATE CALCIUM. [Concomitant]
     Active Substance: ACAMPROSATE CALCIUM
     Indication: ALCOHOLISM
     Dosage: TOTAL DAILY DOSE :1980 MG, TID
     Route: 048
     Dates: start: 200312, end: 20150323
  6. CLONAZEPAM. [Concomitant]
     Active Substance: CLONAZEPAM
     Indication: DEPRESSION
     Dosage: TOTAL DAILY DOSE: 1.5 MG, TID
     Route: 048
     Dates: start: 200312
  7. PEMBROLIZUMAB. [Suspect]
     Active Substance: PEMBROLIZUMAB
     Indication: NON-SMALL CELL LUNG CANCER
     Dosage: 10 MG/KG, Q3W
     Route: 042
     Dates: start: 20150129, end: 20150129
  8. TIOTROPIUM BROMIDE [Concomitant]
     Active Substance: TIOTROPIUM BROMIDE
     Indication: EMPHYSEMA
     Dosage: TOTAL DAILY DOSE: 5 MCG, BID, FORMULATION: INHALANT
     Route: 061
     Dates: start: 20130828
  9. FLUNITRAZEPAM [Concomitant]
     Active Substance: FLUNITRAZEPAM
     Indication: DEPRESSION
     Dosage: 2 MG, QD
     Route: 048
     Dates: start: 200312, end: 20150323
  10. ACETAMINOPHEN. [Concomitant]
     Active Substance: ACETAMINOPHEN
     Indication: HEADACHE
     Dosage: TOTAL DAILY DOSE: 400 MG, PRN
     Route: 048
     Dates: start: 20150210, end: 20150226

REACTIONS (1)
  - Drug eruption [Recovering/Resolving]

NARRATIVE: CASE EVENT DATE: 20150305
